FAERS Safety Report 17636502 (Version 1)
Quarter: 2020Q2

REPORT INFORMATION
  Report Type: Spontaneous
  Country: US (occurrence: US)
  Receive Date: 20200404
  Receipt Date: 20200404
  Transmission Date: 20200713
  Serious: Yes (Life-Threatening, Hospitalization, Disabling, Other)
  Sender: FDA-Public Use
  Company Number: None

PATIENT
  Age: 29 Year
  Sex: Female
  Weight: 72 kg

DRUGS (12)
  1. HYDROCODONE APAP 10/325MG [Concomitant]
  2. REGLAN 2.5MG [Concomitant]
  3. FLEXERIL [Concomitant]
     Active Substance: CYCLOBENZAPRINE HYDROCHLORIDE
  4. MIRALAX [Concomitant]
     Active Substance: POLYETHYLENE GLYCOL 3350
  5. ASPERCREME NOS [Concomitant]
     Active Substance: MENTHOL\TROLAMINE SALICYLATE
  6. HUMIRA [Suspect]
     Active Substance: ADALIMUMAB
     Indication: PSORIATIC ARTHROPATHY
     Dosage: ?          QUANTITY:1 INJECTION(S);OTHER FREQUENCY:EVERY OTHER WEEK;?
     Route: 058
     Dates: start: 20170105, end: 20191002
  7. FENTANYL 25MCG/MG [Concomitant]
  8. MULTIVITAMIN [Concomitant]
     Active Substance: VITAMINS
  9. PHENERGAN 10MG [Concomitant]
  10. ETHINYL ESTRADIOL AND LEVONORGESTREL 90 UG-20UG [Concomitant]
  11. ONDANSETRON 4MG [Concomitant]
     Active Substance: ONDANSETRON
  12. SENNA [Concomitant]
     Active Substance: SENNA LEAF\SENNOSIDES\SENNOSIDES A AND B

REACTIONS (9)
  - Iridocyclitis [None]
  - Glaucoma [None]
  - Duodenal ulcer [None]
  - Haematochezia [None]
  - Haemorrhage [None]
  - Optic nerve injury [None]
  - Packed red blood cell transfusion [None]
  - Cataract [None]
  - Chest pain [None]

NARRATIVE: CASE EVENT DATE: 20170330
